FAERS Safety Report 7228140-2 (Version None)
Quarter: 2011Q1

REPORT INFORMATION
  Report Type: 
  Country: None (occurrence: None)
  Receive Date: 20110114
  Receipt Date: 20071018
  Transmission Date: 20110831
  Serious: Yes (Other)
  Sender: FDA-Public Use
  Company Number: PHHY2007CA03743

PATIENT
  Sex: Male

DRUGS (1)
  1. SANDOSTATIN LAR [Suspect]
     Indication: CARCINOID TUMOUR
     Dosage: 60 MG, BIW
     Route: 030
     Dates: start: 20011220

REACTIONS (4)
  - BLOOD COUNT ABNORMAL [None]
  - DIARRHOEA [None]
  - FLUSHING [None]
  - DRUG DOSE OMISSION [None]
